FAERS Safety Report 23354492 (Version 1)
Quarter: 2024Q1

REPORT INFORMATION
  Report Type: Other
  Country: CN (occurrence: CN)
  Receive Date: 20240101
  Receipt Date: 20240101
  Transmission Date: 20240410
  Serious: Yes (Hospitalization, Other)
  Sender: FDA-Public Use
  Company Number: CN-GILEAD-2023-0656170

PATIENT
  Age: 67 Year
  Sex: Male
  Weight: 65 kg

DRUGS (2)
  1. AMPHOTERICIN B [Suspect]
     Active Substance: AMPHOTERICIN B
     Indication: Pneumonia cryptococcal
     Route: 042
     Dates: start: 20231208, end: 20231214
  2. FLUCYTOSINE [Suspect]
     Active Substance: FLUCYTOSINE
     Indication: Pneumonia cryptococcal
     Dosage: 1.5 G, THRICE DAILY (8 HOURS)
     Route: 048
     Dates: start: 20231208, end: 20231214

REACTIONS (3)
  - Abdominal distension [Recovering/Resolving]
  - Eating disorder symptom [Recovering/Resolving]
  - Hypokalaemia [Recovering/Resolving]

NARRATIVE: CASE EVENT DATE: 20231211
